FAERS Safety Report 17319653 (Version 1)
Quarter: 2020Q1

REPORT INFORMATION
  Report Type: Spontaneous
  Country: US (occurrence: US)
  Receive Date: 20200125
  Receipt Date: 20200125
  Transmission Date: 20200409
  Serious: Yes (Hospitalization, Other)
  Sender: FDA-Public Use
  Company Number: US-DRREDDYS-USA/USA/20/0118602

PATIENT
  Age: 66 Year
  Sex: Male
  Weight: 104.33 kg

DRUGS (2)
  1. CIPROFLOXACIN. [Suspect]
     Active Substance: CIPROFLOXACIN
     Indication: PRODUCT USED FOR UNKNOWN INDICATION
     Route: 048
     Dates: start: 20180325, end: 20180325
  2. LEVAQUIN [Concomitant]
     Active Substance: LEVOFLOXACIN
     Indication: BRONCHITIS
     Route: 042

REACTIONS (4)
  - Neuropathy peripheral [Unknown]
  - Toxicity to various agents [Unknown]
  - Diverticulitis [Unknown]
  - Mitochondrial cytopathy [Unknown]

NARRATIVE: CASE EVENT DATE: 20180325
